FAERS Safety Report 20169847 (Version 1)
Quarter: 2021Q4

REPORT INFORMATION
  Report Type: Spontaneous
  Country: US (occurrence: US)
  Receive Date: 20211210
  Receipt Date: 20211210
  Transmission Date: 20220303
  Serious: Yes (Hospitalization)
  Sender: FDA-Public Use
  Company Number: US-MYLANLABS-2021M1090612

PATIENT
  Age: 79 Year
  Sex: Male

DRUGS (2)
  1. ALLOPURINOL [Suspect]
     Active Substance: ALLOPURINOL
     Indication: Prophylaxis
     Dosage: UNK
     Route: 065
  2. IBRUTINIB [Concomitant]
     Active Substance: IBRUTINIB
     Indication: B-cell lymphoma
     Dosage: UNK
     Route: 065

REACTIONS (4)
  - Drug-induced liver injury [Recovering/Resolving]
  - Hepatitis cholestatic [Recovering/Resolving]
  - Acute kidney injury [Recovering/Resolving]
  - Hyperphosphataemia [Recovering/Resolving]
